FAERS Safety Report 8816948 (Version 1)
Quarter: 2012Q4

REPORT INFORMATION
  Report Type: Spontaneous
  Country: US (occurrence: None)
  Receive Date: 20121002
  Receipt Date: 20121002
  Transmission Date: 20130627
  Serious: Yes (Other)
  Sender: FDA-Public Use
  Company Number: None

PATIENT
  Age: 42 Year
  Sex: Female
  Weight: 158.76 kg

DRUGS (2)
  1. ROPINIROLE [Suspect]
     Indication: RESTLESS LEG SYNDROME
     Dosage: 0.5 to 1 mg Q evening- pc  po
     Route: 048
     Dates: start: 20120912, end: 20120924
  2. ROPINIROLE [Suspect]
     Indication: NARCOLEPSY WITH CATAPLEXY
     Dosage: 0.5 to 1 mg Q evening- pc  po
     Route: 048
     Dates: start: 20120912, end: 20120924

REACTIONS (7)
  - Nausea [None]
  - Confusional state [None]
  - Vomiting [None]
  - Blood pressure increased [None]
  - Strabismus [None]
  - Infarction [None]
  - Cerebrovascular accident [None]
